FAERS Safety Report 7242060-9 (Version None)
Quarter: 2011Q1

REPORT INFORMATION
  Report Type: 
  Country: None (occurrence: None)
  Receive Date: 20110124
  Receipt Date: 20110118
  Transmission Date: 20110831
  Serious: Yes (Hospitalization)
  Sender: FDA-Public Use
  Company Number: DE-PFIZER INC-2011012538

PATIENT
  Age: 41 Year
  Sex: Female
  Weight: 102 kg

DRUGS (5)
  1. DESMOPRESSIN ACETATE [Concomitant]
     Indication: DIABETES INSIPIDUS
     Dosage: 1 DF, 3X/DAY
     Dates: start: 20001220
  2. SOMATROPIN [Suspect]
     Indication: HYPOPITUITARISM
     Dosage: 0.2 MG, 1X/DAY
     Dates: start: 20091019, end: 20101102
  3. METFORMIN [Concomitant]
     Indication: DIABETES MELLITUS
     Dosage: 1000 MG, 3X/DAY
     Dates: start: 20070901
  4. GLIMEPIRIDE [Concomitant]
     Indication: DIABETES MELLITUS
     Dosage: 2 MG, 1X/DAY
     Dates: start: 20070901
  5. ACTIVELLE [Concomitant]
     Indication: OESTROGEN DEFICIENCY
     Dosage: UNK
     Dates: start: 20001220

REACTIONS (1)
  - SENSORY DISTURBANCE [None]
